FAERS Safety Report 4828410-9 (Version None)
Quarter: 2005Q4

REPORT INFORMATION
  Report Type: 
  Country: None (occurrence: None)
  Receive Date: 20051115
  Receipt Date: 20050802
  Transmission Date: 20060501
  Serious: Yes (Death)
  Sender: FDA-Public Use
  Company Number: US-MERCK-0508USA01118

PATIENT
  Age: 73 Year
  Sex: Male
  Weight: 91 kg

DRUGS (17)
  1. VIOXX [Suspect]
     Indication: ARTHRALGIA
     Route: 048
     Dates: end: 20030804
  2. [THERAPY UNSPECIFIED] [Concomitant]
     Route: 065
  3. CARDURA [Concomitant]
     Route: 065
  4. MAXZIDE [Concomitant]
     Route: 065
  5. ACIPHEX [Concomitant]
     Route: 065
  6. LIBRIUM [Concomitant]
     Route: 065
  7. DARVOCET-N 100 [Concomitant]
     Route: 065
  8. ASPIRIN [Concomitant]
     Route: 065
  9. IMODIUM [Concomitant]
     Route: 065
  10. TYLENOL (CAPLET) [Concomitant]
     Route: 065
  11. CHLORDIAZEPOXIDE [Concomitant]
     Route: 065
  12. NORTRIPTYLINE [Concomitant]
     Route: 065
  13. METHYLPREDNISOLONE [Concomitant]
     Route: 065
  14. DOXAZOSIN MESYLATE [Concomitant]
     Route: 065
  15. RHINOCORT [Concomitant]
     Route: 065
  16. VICODIN [Concomitant]
     Route: 065
  17. OXYBUTYNIN [Concomitant]
     Route: 065

REACTIONS (2)
  - CHRONIC OBSTRUCTIVE PULMONARY DISEASE [None]
  - DEATH [None]
